FAERS Safety Report 7079293-0 (Version None)
Quarter: 2010Q4

REPORT INFORMATION
  Report Type: 
  Country: None (occurrence: None)
  Receive Date: 20101022
  Receipt Date: 20101015
  Transmission Date: 20110411
  Serious: Yes (Other)
  Sender: FDA-Public Use
  Company Number: 2010SP050672

PATIENT
  Age: 57 Year
  Sex: Male

DRUGS (4)
  1. TEMODAL [Suspect]
     Indication: GLIOBLASTOMA
     Dosage: 140 MG;QD;PO, 140 MG;QD;PO, 140 MG;QD;PO, 140 MG;QD;PO
     Route: 048
     Dates: start: 20100818
  2. TEMODAL [Suspect]
     Indication: GLIOBLASTOMA
     Dosage: 140 MG;QD;PO, 140 MG;QD;PO, 140 MG;QD;PO, 140 MG;QD;PO
     Route: 048
     Dates: start: 20100825
  3. TEMODAL [Suspect]
     Indication: GLIOBLASTOMA
     Dosage: 140 MG;QD;PO, 140 MG;QD;PO, 140 MG;QD;PO, 140 MG;QD;PO
     Route: 048
     Dates: start: 20100901
  4. TEMODAL [Suspect]
     Indication: GLIOBLASTOMA
     Dosage: 140 MG;QD;PO, 140 MG;QD;PO, 140 MG;QD;PO, 140 MG;QD;PO
     Route: 048
     Dates: start: 20100908

REACTIONS (3)
  - HALLUCINATION [None]
  - NEOPLASM RECURRENCE [None]
  - THROMBOCYTOPENIA [None]
